FAERS Safety Report 5595691-6 (Version None)
Quarter: 2008Q1

REPORT INFORMATION
  Report Type: 
  Country: None (occurrence: None)
  Receive Date: 20080118
  Receipt Date: 20080115
  Transmission Date: 20080703
  Serious: Yes (Death, Hospitalization, Other)
  Sender: FDA-Public Use
  Company Number: PHEH2007US15344

PATIENT
  Age: 92 Year
  Sex: Female
  Weight: 57.142 kg

DRUGS (1)
  1. EXJADE [Suspect]
     Indication: IRON OVERLOAD
     Dosage: 250MG, 4 TABLETS QD
     Route: 048
     Dates: start: 20070504, end: 20071201

REACTIONS (7)
  - DEPRESSED LEVEL OF CONSCIOUSNESS [None]
  - HAEMATOCRIT DECREASED [None]
  - HAEMOGLOBIN DECREASED [None]
  - PYREXIA [None]
  - SEPSIS [None]
  - SERUM FERRITIN INCREASED [None]
  - URINARY TRACT INFECTION [None]
